FAERS Safety Report 5389059-5 (Version None)
Quarter: 2007Q3

REPORT INFORMATION
  Report Type: 
  Country: None (occurrence: None)
  Receive Date: 20070717
  Receipt Date: 20070705
  Transmission Date: 20080115
  Serious: Yes (Hospitalization, Other)
  Sender: FDA-Public Use
  Company Number: JP-BRISTOL-MYERS SQUIBB COMPANY-13829551

PATIENT
  Age: 1 Week
  Sex: Female

DRUGS (9)
  1. ARIPIPRAZOLE [Suspect]
     Dosage: ON 15-DEC-2006 INCREASED TO 24 MG/DAY AND DECREASED TO 9 MG/DAY ON 22-JAN-2007
     Route: 064
     Dates: start: 20061206, end: 20070613
  2. ETIZOLAM [Suspect]
     Dosage: 5-FEB-2007 DECREASED TO 1 MG
     Route: 064
     Dates: start: 20061206, end: 20070613
  3. QUAZEPAM [Suspect]
     Route: 064
     Dates: start: 20070611, end: 20070613
  4. BIPERIDEN HYDROCHLORIDE TAB [Concomitant]
     Dosage: DURATION: 8 WEEKS 3 DAYS
     Route: 064
     Dates: start: 20061206, end: 20070613
  5. AMOXICILLIN [Concomitant]
     Route: 064
     Dates: start: 20070613, end: 20070613
  6. METHERGINE [Concomitant]
     Route: 064
     Dates: start: 20070613, end: 20070613
  7. CETRAXATE HCL [Concomitant]
     Route: 064
     Dates: start: 20070613, end: 20070613
  8. PIPERACILLIN SODIUM [Concomitant]
     Route: 064
     Dates: start: 20070613, end: 20070613
  9. OXYTOCIN [Concomitant]
     Route: 064
     Dates: start: 20070613, end: 20070613

REACTIONS (2)
  - DRUG EXPOSURE DURING PREGNANCY [None]
  - DRUG WITHDRAWAL SYNDROME NEONATAL [None]
